FAERS Safety Report 10506202 (Version 2)
Quarter: 2014Q4

REPORT INFORMATION
  Report Type: Spontaneous
  Country: AU (occurrence: AU)
  Receive Date: 20141009
  Receipt Date: 20141216
  Transmission Date: 20150528
  Serious: Yes (Death, Other)
  Sender: FDA-Public Use
  Company Number: AU-MERCK-1410AUS003412

PATIENT
  Age: 58 Year
  Sex: Male

DRUGS (1)
  1. NOXAFIL [Suspect]
     Active Substance: POSACONAZOLE
     Route: 042

REACTIONS (3)
  - Enterococcal sepsis [Fatal]
  - Graft versus host disease in gastrointestinal tract [Fatal]
  - Concomitant disease progression [Fatal]
